FAERS Safety Report 23247625 (Version 1)
Quarter: 2023Q4

REPORT INFORMATION
  Report Type: Spontaneous
  Country: US (occurrence: US)
  Receive Date: 20231130
  Receipt Date: 20231130
  Transmission Date: 20240109
  Serious: Yes (Life-Threatening, Hospitalization)
  Sender: FDA-Public Use
  Company Number: US-MLMSERVICE-20231116-4664286-1

PATIENT
  Age: 62 Year
  Sex: Male

DRUGS (5)
  1. METFORMIN [Interacting]
     Active Substance: METFORMIN HYDROCHLORIDE
     Indication: Type 2 diabetes mellitus
     Route: 065
  2. DOLUTEGRAVIR [Interacting]
     Active Substance: DOLUTEGRAVIR
     Indication: HIV infection
     Dosage: RESTARTED
     Route: 065
  3. DULAGLUTIDE [Interacting]
     Active Substance: DULAGLUTIDE
     Indication: Type 2 diabetes mellitus
     Dosage: RESTARTED
     Route: 065
  4. ATAZANAVIR, COBICISTAT [Concomitant]
     Indication: HIV infection
     Dosage: RESTARTED
     Route: 065
  5. RILPIVIRINE [Concomitant]
     Active Substance: RILPIVIRINE
     Indication: HIV infection
     Dosage: RESTARTED
     Route: 065

REACTIONS (2)
  - Drug interaction [Recovered/Resolved]
  - Lactic acidosis [Recovered/Resolved]
